FAERS Safety Report 10365729 (Version 2)
Quarter: 2014Q3

REPORT INFORMATION
  Report Type: Spontaneous
  Country: GB (occurrence: None)
  Receive Date: 20140829
  Receipt Date: 20140829
  Transmission Date: 20150326
  Serious: Yes (Other)
  Sender: FDA-Public Use
  Company Number: GB-DEXPHARM-20140497

PATIENT
  Age: 61 Year
  Sex: Female

DRUGS (2)
  1. INSULIN [Concomitant]
     Active Substance: INSULIN NOS
  2. PERIOCHIP [Suspect]
     Active Substance: CHLORHEXIDINE GLUCONATE
     Indication: PERIODONTITIS
     Dosage: 1 DF DOSAGE FORM, DENTAL
     Route: 004
     Dates: start: 20140711, end: 20140711

REACTIONS (7)
  - Paraesthesia [None]
  - Dysgeusia [None]
  - Neuritis [None]
  - Application site pain [None]
  - Neuropathy peripheral [None]
  - VIIth nerve paralysis [None]
  - Hypoaesthesia [None]

NARRATIVE: CASE EVENT DATE: 20140712
